FAERS Safety Report 15735911 (Version 2)
Quarter: 2018Q4

REPORT INFORMATION
  Report Type: Spontaneous
  Country: HU (occurrence: HU)
  Receive Date: 20181218
  Receipt Date: 20181226
  Transmission Date: 20190205
  Serious: Yes (Death, Hospitalization)
  Sender: FDA-Public Use
  Company Number: HU-PFIZER INC-2018518254

PATIENT
  Age: 78 Year
  Sex: Male

DRUGS (12)
  1. PERINDOPRIL [Suspect]
     Active Substance: PERINDOPRIL
     Dosage: 4 MG, UNK
  2. PREGABALIN. [Suspect]
     Active Substance: PREGABALIN
     Dosage: 75 MG, QD (IN THE EVENING)
  3. ATORVASTATIN CALCIUM. [Suspect]
     Active Substance: ATORVASTATIN CALCIUM
     Dosage: 20 MG, BID (1-1-0)
  4. CARVEDILOL. [Suspect]
     Active Substance: CARVEDILOL
     Dosage: 12.5 MG, BID
  5. PREGABALIN. [Suspect]
     Active Substance: PREGABALIN
     Dosage: 150 MG, BID
  6. GLYCERYL TRINITRATE [Suspect]
     Active Substance: NITROGLYCERIN
     Dosage: 2.6 MG, UNK
  7. ASA [Concomitant]
     Active Substance: ASPIRIN
     Dosage: 100 MG, UNK
  8. SITAGLIPTIN METFORMIN [Concomitant]
     Active Substance: METFORMIN HYDROCHLORIDE\SITAGLIPTIN PHOSPHATE
     Dosage: 1 DF, BID(50/1000MG)
  9. METFORMIN [Suspect]
     Active Substance: METFORMIN HYDROCHLORIDE
     Indication: TYPE 2 DIABETES MELLITUS
     Dosage: 1000 MG, BID
  10. ALPHA LIPOIC ACID [Concomitant]
     Active Substance: .ALPHA.-LIPOIC ACID
     Dosage: 6000 MG, 1X/IN THE MORNING
  11. GLIQUIDONE [Concomitant]
     Active Substance: GLIQUIDONE
     Dosage: 15 MG, BID
  12. SITAGLIPTIN [Concomitant]
     Active Substance: SITAGLIPTIN
     Dosage: 50 MG, UNK

REACTIONS (9)
  - Drug ineffective [Fatal]
  - Chronic kidney disease [Fatal]
  - Atrial fibrillation [Fatal]
  - Dyslipidaemia [Fatal]
  - Metabolic disorder [Fatal]
  - Nephrogenic anaemia [Fatal]
  - Arteriosclerosis [Fatal]
  - Cardiac failure [Fatal]
  - General physical health deterioration [Fatal]

NARRATIVE: CASE EVENT DATE: 1999
